FAERS Safety Report 5663413-6 (Version None)
Quarter: 2008Q1

REPORT INFORMATION
  Report Type: 
  Country: None (occurrence: None)
  Receive Date: 20080313
  Receipt Date: 20080303
  Transmission Date: 20080703
  Serious: Yes (Other)
  Sender: FDA-Public Use
  Company Number: BW-ABBOTT-07P-163-0356199-00

PATIENT
  Age: 32 Year
  Sex: Female

DRUGS (5)
  1. NORVIR [Suspect]
     Indication: HIV INFECTION
     Route: 048
     Dates: start: 20050503
  2. STAVUDINE [Suspect]
     Indication: HIV INFECTION
     Route: 048
     Dates: start: 20040726, end: 20050503
  3. LAMIVUDINE [Suspect]
     Indication: HIV INFECTION
     Route: 048
     Dates: start: 20040726, end: 20050503
  4. NEVIRAPINE [Suspect]
     Indication: HIV INFECTION
     Route: 048
     Dates: start: 20040809
  5. SAQUINAVIR MESILATE [Suspect]
     Indication: HIV INFECTION
     Route: 048
     Dates: start: 20050503

REACTIONS (1)
  - ABORTION SPONTANEOUS [None]
